FAERS Safety Report 4400817-3 (Version None)
Quarter: 2004Q3

REPORT INFORMATION
  Report Type: 
  Country: None (occurrence: None)
  Receive Date: 20040907
  Receipt Date: 20030623
  Transmission Date: 20050211
  Serious: No
  Sender: FDA-Public Use
  Company Number: US-BRISTOL-MYERS SQUIBB COMPANY-12308672

PATIENT
  Age: 70 Year
  Sex: Female
  Weight: 128 kg

DRUGS (12)
  1. COUMADIN [Suspect]
     Indication: HEART RATE IRREGULAR
     Route: 048
  2. TYLENOL [Concomitant]
     Route: 048
     Dates: end: 20030621
  3. PRINIVIL [Concomitant]
  4. LASIX [Concomitant]
     Dosage: DOSAGE: 40MG TO 80MG DAILY
  5. VITAMIN E [Concomitant]
  6. CALCIUM [Concomitant]
  7. VITAMIN C [Concomitant]
  8. MULTI-VITAMIN [Concomitant]
  9. VITAMIN K TAB [Concomitant]
  10. CHONDROITIN + GLUCOSAMINE [Concomitant]
  11. ARTHROTEC [Concomitant]
  12. PROPOXYPHENE HCL [Concomitant]

REACTIONS (4)
  - CYANOSIS [None]
  - INCREASED TENDENCY TO BRUISE [None]
  - INTERNATIONAL NORMALISED RATIO ABNORMAL [None]
  - LIMB INJURY [None]
